FAERS Safety Report 7933863-3 (Version None)
Quarter: 2011Q4

REPORT INFORMATION
  Report Type: 
  Country: None (occurrence: None)
  Receive Date: 20111118
  Receipt Date: 20111107
  Transmission Date: 20120403
  Serious: Yes (Death, Life-Threatening, Other)
  Sender: FDA-Public Use
  Company Number: USA/USA/11/0021919

PATIENT
  Age: 31 Year
  Sex: Female

DRUGS (2)
  1. ZONISAMIDE [Suspect]
     Indication: MIGRAINE
  2. BACTRIM [Suspect]
     Indication: RESPIRATORY TRACT INFECTION

REACTIONS (9)
  - CARDIAC FAILURE [None]
  - RENAL FAILURE ACUTE [None]
  - PERICARDIAL EFFUSION [None]
  - CARDIAC ARREST [None]
  - HYPOTENSION [None]
  - DRUG RASH WITH EOSINOPHILIA AND SYSTEMIC SYMPTOMS [None]
  - HEPATITIS [None]
  - EOSINOPHILIC MYOCARDITIS [None]
  - CARDIAC TAMPONADE [None]
